FAERS Safety Report 8574590 (Version 2)
Quarter: 2014Q2

REPORT INFORMATION
  Report Type: Spontaneous
  Country: US (occurrence: US)
  Receive Date: 20120522
  Receipt Date: 20140508
  Transmission Date: 20141212
  Serious: No
  Sender: FDA-Public Use
  Company Number: US-ASTRAZENECA-2012SE18159

PATIENT
  Age: 40 Year
  Sex: Female
  Weight: 68 kg

DRUGS (10)
  1. PRILOSEC [Suspect]
     Route: 048
  2. NEXIUM [Suspect]
     Indication: GASTROOESOPHAGEAL REFLUX DISEASE
     Dosage: NEXIUM 40 MG DAILY, WAS STARTED ON MARCH 8
     Route: 048
  3. NEXIUM [Suspect]
     Indication: GASTROOESOPHAGEAL REFLUX DISEASE
     Route: 048
     Dates: start: 2013, end: 201404
  4. PRILOSEC OTC [Suspect]
     Route: 048
     Dates: start: 201404
  5. ALOE 2 OZ [Concomitant]
  6. PAPAYA ENZYME [Concomitant]
  7. PREVACID [Concomitant]
  8. BENADRYL [Concomitant]
     Indication: HYPERSENSITIVITY
  9. CHEWABLE ENZYMES [Concomitant]
  10. PROBIOTIC [Concomitant]

REACTIONS (13)
  - Gastrooesophageal reflux disease [Unknown]
  - Acute sinusitis [Unknown]
  - Ear pain [Unknown]
  - Hypertension [Unknown]
  - Hernia [Unknown]
  - Fat intolerance [Unknown]
  - Cough [Unknown]
  - Abdominal pain upper [Unknown]
  - Nausea [Unknown]
  - Abdominal distension [Unknown]
  - Drug ineffective [Unknown]
  - Drug dose omission [Unknown]
  - Drug effect decreased [Unknown]
